FAERS Safety Report 5312960-5 (Version None)
Quarter: 2007Q2

REPORT INFORMATION
  Report Type: 
  Country: None (occurrence: None)
  Receive Date: 20070430
  Receipt Date: 20070418
  Transmission Date: 20071010
  Serious: Yes (Death, Hospitalization, Other)
  Sender: FDA-Public Use
  Company Number: US-PFIZER INC-2006121847

PATIENT
  Sex: Male

DRUGS (2)
  1. CELECOXIB [Suspect]
     Indication: PAIN IN EXTREMITY
     Route: 048
     Dates: start: 20010121, end: 20020315
  2. VIOXX [Suspect]
     Route: 048
     Dates: start: 20020301, end: 20030301

REACTIONS (3)
  - CARDIAC FAILURE CONGESTIVE [None]
  - MYOCARDIAL INFARCTION [None]
  - THROMBOSIS [None]
